FAERS Safety Report 18594413 (Version 2)
Quarter: 2020Q4

REPORT INFORMATION
  Report Type: Spontaneous
  Country: JP (occurrence: JP)
  Receive Date: 20201209
  Receipt Date: 20201230
  Transmission Date: 20210114
  Serious: Yes (Other)
  Sender: FDA-Public Use
  Company Number: JP-PFIZER INC-2020486198

PATIENT
  Age: 57 Year
  Sex: Female

DRUGS (6)
  1. IBRANCE [Suspect]
     Active Substance: PALBOCICLIB
     Dosage: 125 MG, 1X/DAY
     Route: 048
     Dates: start: 20201207, end: 20201212
  2. RANMARK [Suspect]
     Active Substance: DENOSUMAB
     Dosage: UNK
  3. IBRANCE [Suspect]
     Active Substance: PALBOCICLIB
     Dosage: 125 MG, 1X/DAY
     Route: 048
     Dates: start: 20201019, end: 20201102
  4. IBRANCE [Suspect]
     Active Substance: PALBOCICLIB
     Dosage: 25 MG, 1X/DAY
     Route: 048
     Dates: start: 20201213, end: 202012
  5. EDIROL [Concomitant]
     Active Substance: ELDECALCITOL
     Dosage: (1 CAPSULE) 1X/DAY
     Route: 048
     Dates: start: 20190312
  6. CALCIUM L-ASPARTATE [Concomitant]
     Dosage: 200 MG, 2X/DAY (2 TABLETS)
     Route: 048
     Dates: start: 20190312

REACTIONS (1)
  - Myelosuppression [Recovered/Resolved]

NARRATIVE: CASE EVENT DATE: 202011
